FAERS Safety Report 6509542-6 (Version None)
Quarter: 2009Q4

REPORT INFORMATION
  Report Type: 
  Country: None (occurrence: None)
  Receive Date: 20091222
  Receipt Date: 20091215
  Transmission Date: 20100525
  Serious: Yes (Death)
  Sender: FDA-Public Use
  Company Number: JP-BAYER-200914471BYL

PATIENT
  Age: 82 Year
  Sex: Male

DRUGS (2)
  1. NEXAVAR [Suspect]
     Indication: HEPATIC NEOPLASM MALIGNANT
     Dosage: TOTAL DAILY DOSE: 800 MG  UNIT DOSE: 200 MG
     Route: 048
     Dates: start: 20090804, end: 20090901
  2. NEXAVAR [Suspect]
     Dosage: TOTAL DAILY DOSE: 400 MG  UNIT DOSE: 200 MG
     Route: 048
     Dates: start: 20090901

REACTIONS (11)
  - ALTERED STATE OF CONSCIOUSNESS [None]
  - DECREASED APPETITE [None]
  - DEHYDRATION [None]
  - FALL [None]
  - HEPATIC NEOPLASM MALIGNANT [None]
  - HEPATIC RUPTURE [None]
  - MALIGNANT NEOPLASM PROGRESSION [None]
  - NAUSEA [None]
  - ORTHOSTATIC HYPOTENSION [None]
  - RESPIRATORY RATE DECREASED [None]
  - SHOCK HAEMORRHAGIC [None]
